FAERS Safety Report 21863293 (Version 1)
Quarter: 2023Q1

REPORT INFORMATION
  Report Type: Spontaneous
  Country: NL (occurrence: NL)
  Receive Date: 20230115
  Receipt Date: 20230115
  Transmission Date: 20230418
  Serious: Yes (Other)
  Sender: FDA-Public Use
  Company Number: None

PATIENT
  Sex: Male
  Weight: 62.7 kg

DRUGS (8)
  1. APREPITANT [Suspect]
     Active Substance: APREPITANT
     Indication: Vomiting
     Dosage: 80 MG, QD (1 X 1 X PER DAG 1 STUK)
     Route: 065
     Dates: start: 20220822, end: 20230102
  2. APREPITANT [Suspect]
     Active Substance: APREPITANT
     Indication: Nausea
  3. NOVORAPID [Concomitant]
     Active Substance: INSULIN ASPART
     Indication: Product used for unknown indication
     Dosage: UNK (LEXPEN INJVLST 100E/ML PEN 3M)
     Route: 065
  4. OMEPRAZOLE [Concomitant]
     Active Substance: OMEPRAZOLE
     Indication: Product used for unknown indication
     Dosage: 40 MG, Q12H
     Route: 065
  5. MAGNESIUMHYDROXIDE [Concomitant]
     Indication: Product used for unknown indication
     Dosage: 724 MG, Q12H
     Route: 065
  6. THIAMINE [Concomitant]
     Active Substance: THIAMINE
     Indication: Product used for unknown indication
     Dosage: 100 MG, QD
     Route: 065
  7. ACETAMINOPHEN [Concomitant]
     Active Substance: ACETAMINOPHEN
     Indication: Product used for unknown indication
     Dosage: UNK
     Route: 065
  8. LEVEMIR [Concomitant]
     Active Substance: INSULIN DETEMIR
     Indication: Product used for unknown indication
     Dosage: UNK (FLEXPEN INJ 100E/ML PEN 3ML) (1DD48 E)
     Route: 065

REACTIONS (1)
  - Sudden hearing loss [Not Recovered/Not Resolved]
